FAERS Safety Report 25629583 (Version 1)
Quarter: 2025Q3

REPORT INFORMATION
  Report Type: Spontaneous
  Country: BR (occurrence: BR)
  Receive Date: 20250731
  Receipt Date: 20250731
  Transmission Date: 20251021
  Serious: Yes (Other)
  Sender: NOVO NORDISK
  Company Number: BR-NOVOPROD-1487581

PATIENT
  Age: 674 Month
  Sex: Female

DRUGS (3)
  1. NOVOLIN R [Suspect]
     Active Substance: INSULIN HUMAN
     Indication: Diabetes mellitus
     Dates: start: 20250716
  2. NOVOLIN R [Suspect]
     Active Substance: INSULIN HUMAN
     Dosage: 4 IU, QD
     Dates: start: 20250722
  3. NOVOLIN R [Suspect]
     Active Substance: INSULIN HUMAN
     Dosage: 3 IU, QD
     Dates: start: 20250722

REACTIONS (4)
  - Surgery [Unknown]
  - Blood glucose increased [Unknown]
  - Post procedural complication [Unknown]
  - Drug ineffective [Not Recovered/Not Resolved]

NARRATIVE: CASE EVENT DATE: 20250717
